FAERS Safety Report 7705348-0 (Version None)
Quarter: 2011Q3

REPORT INFORMATION
  Report Type: 
  Country: None (occurrence: None)
  Receive Date: 20110824
  Receipt Date: 20110810
  Transmission Date: 20111222
  Serious: Yes (Hospitalization)
  Sender: FDA-Public Use
  Company Number: IT-MYLANLABS-2011S1016777

PATIENT
  Age: 75 Year
  Sex: Male

DRUGS (5)
  1. CITALOPRAM HYDROBROMIDE [Suspect]
     Dosage: 20 MG/DAY
     Route: 065
  2. QUETIAPINE [Concomitant]
     Route: 065
  3. CIMETIDINE [Interacting]
     Indication: GASTRODUODENAL ULCER
     Route: 065
  4. DONEPEZIL HCL [Concomitant]
     Dosage: 10 MG/DAY
     Route: 065
  5. TICLOPIDINE HCL [Concomitant]
     Route: 065

REACTIONS (2)
  - SEROTONIN SYNDROME [None]
  - DRUG INTERACTION [None]
